FAERS Safety Report 21987508 (Version 3)
Quarter: 2023Q2

REPORT INFORMATION
  Report Type: Other
  Country: US (occurrence: None)
  Receive Date: 20230214
  Receipt Date: 20230531
  Transmission Date: 20230722
  Serious: Yes (Other)
  Sender: FDA-Public Use
  Company Number: US-ROCHE-3283227

PATIENT
  Age: 62 Year
  Sex: Female
  Weight: 65.83 kg

DRUGS (1)
  1. OCREVUS [Suspect]
     Active Substance: OCRELIZUMAB
     Indication: Relapsing-remitting multiple sclerosis
     Dosage: DATE OF TREATMENT: 20/OCT/2022, 03/NOV/2022.
     Route: 042
     Dates: start: 202210

REACTIONS (4)
  - Skin infection [Not Recovered/Not Resolved]
  - Joint swelling [Recovered/Resolved]
  - Urinary tract infection [Unknown]
  - Off label use [Unknown]

NARRATIVE: CASE EVENT DATE: 20230101
